FAERS Safety Report 8585902-7 (Version None)
Quarter: 2012Q3

REPORT INFORMATION
  Report Type: 
  Country: None (occurrence: None)
  Receive Date: 20120810
  Receipt Date: 20120802
  Transmission Date: 20120928
  Serious: Yes (Hospitalization)
  Sender: FDA-Public Use
  Company Number: FR-VERTEX PHARMACEUTICALS INC.-000000000000001212

PATIENT
  Sex: Female

DRUGS (8)
  1. ONGLYZA [Concomitant]
  2. TRIMEPRAZINE TARTRATE [Concomitant]
     Dates: start: 20110101
  3. REPAGLINIDE [Concomitant]
  4. ACARBOSE [Concomitant]
  5. INCIVO [Suspect]
     Indication: HEPATITIS C
     Dosage: DOSAGE FORM: TABLET
     Route: 048
     Dates: start: 20120108, end: 20120327
  6. PEGASYS [Concomitant]
     Indication: HEPATITIS C
     Dosage: DOSAGE FORM: SOLUTION FOR INJECTION
     Route: 058
     Dates: start: 20120108, end: 20120325
  7. XANAX [Concomitant]
     Dates: start: 20110101
  8. COPEGUS [Concomitant]
     Indication: HEPATITIS C
     Dosage: 2-0-3
     Route: 048
     Dates: start: 20120108, end: 20120329

REACTIONS (6)
  - ERYTHEMA [None]
  - RASH MACULO-PAPULAR [None]
  - PYREXIA [None]
  - PRURITUS [None]
  - RASH [None]
  - FACE OEDEMA [None]
